FAERS Safety Report 9766589 (Version 1)
Quarter: 2013Q4

REPORT INFORMATION
  Report Type: Spontaneous
  Country: US (occurrence: US)
  Receive Date: 20131217
  Receipt Date: 20131217
  Transmission Date: 20140711
  Serious: No
  Sender: FDA-Public Use
  Company Number: US-GLAXOSMITHKLINE-A1029118A

PATIENT
  Age: 64 Year
  Sex: Male

DRUGS (6)
  1. VOTRIENT [Suspect]
     Indication: RENAL CANCER
     Dosage: 800MG PER DAY
     Route: 048
     Dates: start: 20120815
  2. POTASSIUM GLUCONATE [Concomitant]
  3. VITAMIN D [Concomitant]
  4. AMLODIPINE [Concomitant]
  5. CREON [Concomitant]
  6. PANCRELIPASE [Concomitant]

REACTIONS (1)
  - Muscle spasms [Not Recovered/Not Resolved]
